FAERS Safety Report 10715218 (Version 1)
Quarter: 2015Q1

REPORT INFORMATION
  Report Type: Spontaneous
  Country: US (occurrence: US)
  Receive Date: 20150116
  Receipt Date: 20150116
  Transmission Date: 20150721
  Serious: Yes (Hospitalization)
  Sender: FDA-Public Use
  Company Number: US-AMGEN-USASP2015002874

PATIENT
  Age: 76 Year
  Sex: Female
  Weight: 62.59 kg

DRUGS (5)
  1. PROLIA [Suspect]
     Active Substance: DENOSUMAB
     Indication: OSTEOPOROSIS
     Dosage: UNK
     Route: 065
     Dates: start: 20141128
  2. TYVASO [Interacting]
     Active Substance: TREPROSTINIL
     Indication: PULMONARY HYPERTENSION
     Dosage: 0.6 MG/ML (18-54 MCG), QD
     Route: 065
     Dates: start: 20130612
  3. ADCIRCA [Interacting]
     Active Substance: TADALAFIL
     Indication: PRODUCT USED FOR UNKNOWN INDICATION
     Dosage: UNK
     Route: 065
  4. XARELTO [Concomitant]
     Active Substance: RIVAROXABAN
     Dosage: UNK
  5. TRACLEER [Interacting]
     Active Substance: BOSENTAN\BOSENTAN MONOHYDRATE
     Indication: PRODUCT USED FOR UNKNOWN INDICATION
     Dosage: UNK
     Route: 065

REACTIONS (4)
  - Choking [Unknown]
  - Anaphylactic reaction [Unknown]
  - Drug interaction [Unknown]
  - Osteoporosis [Unknown]

NARRATIVE: CASE EVENT DATE: 201411
